FAERS Safety Report 10007302 (Version 1)
Quarter: 2014Q1

REPORT INFORMATION
  Report Type: Spontaneous
  Country: US (occurrence: None)
  Receive Date: 20140312
  Receipt Date: 20140312
  Transmission Date: 20141002
  Serious: Yes (Hospitalization)
  Sender: FDA-Public Use
  Company Number: None

PATIENT
  Age: 57 Year
  Sex: Male
  Weight: 68.5 kg

DRUGS (3)
  1. IRINOTECAN, 125 MG/M2, PFIZER [Suspect]
     Indication: SMALL CELL LUNG CANCER
     Dosage: DAY 1,8,15 - 1/29,1/30,2/5,2/6/2/122/2/13/14
     Route: 042
  2. CARFILZOMIB, 20 MG/M2, ONYX PHARMACEUTICALS [Suspect]
     Indication: SMALL CELL LUNG CANCER
     Dosage: DAY 1,2,8,9,15,16
     Route: 042
  3. MOTRIN [Concomitant]

REACTIONS (3)
  - Cauda equina syndrome [None]
  - Disease progression [None]
  - Urinary retention [None]
